FAERS Safety Report 9423164 (Version 2)
Quarter: 2013Q4

REPORT INFORMATION
  Report Type: Spontaneous
  Country: US (occurrence: US)
  Receive Date: 20130726
  Receipt Date: 20131010
  Transmission Date: 20140711
  Serious: Yes (Death)
  Sender: FDA-Public Use
  Company Number: US-CELGENEUS-163-21660-13073501

PATIENT
  Age: 50 Year
  Sex: Female

DRUGS (2)
  1. ABRAXANE [Suspect]
     Indication: PANCREATIC CARCINOMA
     Dosage: 75 MILLIGRAM/SQ. METER
     Route: 065
     Dates: start: 20130221, end: 20130410
  2. GEMZAR [Concomitant]
     Indication: PANCREATIC CARCINOMA
     Route: 065
     Dates: start: 20121011, end: 20130410

REACTIONS (1)
  - Pancreatic carcinoma [Fatal]
